FAERS Safety Report 7325769-8 (Version None)
Quarter: 2011Q1

REPORT INFORMATION
  Report Type: 
  Country: None (occurrence: None)
  Receive Date: 20110302
  Receipt Date: 20110207
  Transmission Date: 20110831
  Serious: No
  Sender: FDA-Public Use
  Company Number: US-BAYER-2011-014854

PATIENT
  Sex: Female

DRUGS (2)
  1. ASPIRIN [Suspect]
  2. ALEVE (CAPLET) [Suspect]
     Indication: HEADACHE
     Route: 048

REACTIONS (3)
  - ERYTHEMA [None]
  - URTICARIA [None]
  - DRUG INEFFECTIVE [None]
